FAERS Safety Report 9225091 (Version 1)
Quarter: 2013Q2

REPORT INFORMATION
  Report Type: Spontaneous
  Country: US (occurrence: None)
  Receive Date: 20130410
  Receipt Date: 20130410
  Transmission Date: 20140414
  Serious: Yes (Other)
  Sender: FDA-Public Use
  Company Number: None

PATIENT
  Age: 52 Year
  Sex: Female
  Weight: 98.88 kg

DRUGS (1)
  1. NUCYNTA [Suspect]

REACTIONS (9)
  - Asthenia [None]
  - Dyspnoea [None]
  - Feeling abnormal [None]
  - Disorientation [None]
  - Confusional state [None]
  - Presyncope [None]
  - Nausea [None]
  - Diarrhoea [None]
  - Muscle spasms [None]
